FAERS Safety Report 18561761 (Version 1)
Quarter: 2020Q4

REPORT INFORMATION
  Report Type: Spontaneous
  Country: US (occurrence: US)
  Receive Date: 20201130
  Receipt Date: 20201130
  Transmission Date: 20210114
  Serious: No
  Sender: FDA-Public Use
  Company Number: US-ROCHE-2654456

PATIENT
  Sex: Male

DRUGS (3)
  1. HERCEPTIN [Suspect]
     Active Substance: TRASTUZUMAB
     Indication: COLON CANCER
     Dosage: ONGOING:YES
     Route: 042
     Dates: start: 20190201
  2. PERJETA [Suspect]
     Active Substance: PERTUZUMAB
     Indication: COLON CANCER
     Dosage: ONGOING:YES
     Route: 042
     Dates: start: 20190401
  3. LONSURF [Concomitant]
     Active Substance: TIPIRACIL HYDROCHLORIDE\TRIFLURIDINE
     Dosage: 3 TAB BID ON DAY 1-5 AND 8-12, EVERY 4 WEEKS
     Route: 048

REACTIONS (5)
  - Diarrhoea [Unknown]
  - Off label use [Unknown]
  - Intentional product use issue [Unknown]
  - Weight decreased [Unknown]
  - Decreased appetite [Unknown]
